FAERS Safety Report 11926714 (Version 1)
Quarter: 2016Q1

REPORT INFORMATION
  Report Type: Spontaneous
  Country: JP (occurrence: JP)
  Receive Date: 20160119
  Receipt Date: 20160119
  Transmission Date: 20160526
  Serious: Yes (Hospitalization, Other)
  Sender: FDA-Public Use
  Company Number: JP-TEVA-626362ISR

PATIENT
  Age: 77 Year
  Sex: Male

DRUGS (3)
  1. VILDAGLIPTIN [Suspect]
     Active Substance: VILDAGLIPTIN
     Indication: TYPE 2 DIABETES MELLITUS
     Dosage: 100 MILLIGRAM DAILY;
     Route: 065
  2. GLUCOSE [Concomitant]
     Active Substance: DEXTROSE
     Indication: HYPOGLYCAEMIC COMA
     Route: 042
  3. GLIMEPIRIDE. [Suspect]
     Active Substance: GLIMEPIRIDE
     Indication: ACCIDENTAL EXPOSURE TO PRODUCT
     Dosage: 3 MILLIGRAM DAILY;
     Route: 065

REACTIONS (3)
  - Hypoglycaemic coma [Recovering/Resolving]
  - Accidental exposure to product [Unknown]
  - Hyperinsulinaemia [Recovering/Resolving]
